FAERS Safety Report 9511504 (Version 3)
Quarter: 2013Q4

REPORT INFORMATION
  Report Type: Report from Study
  Country: CA (occurrence: CA)
  Receive Date: 20130910
  Receipt Date: 20131112
  Transmission Date: 20140711
  Serious: Yes (Hospitalization, Other)
  Sender: FDA-Public Use
  Company Number: CA-JNJFOC-20130902054

PATIENT
  Age: 45 Year
  Sex: Female
  Weight: 61.5 kg

DRUGS (8)
  1. REMICADE [Suspect]
     Indication: CROHN^S DISEASE
     Route: 042
     Dates: start: 20121203
  2. AMITRIPTYLINE [Concomitant]
     Route: 065
  3. MAXALT [Concomitant]
     Route: 065
  4. VITAMIN B12 [Concomitant]
     Route: 065
  5. RESTORALAX [Concomitant]
     Route: 065
  6. TYLENOL [Concomitant]
     Route: 065
  7. GRAVOL [Concomitant]
     Route: 065
  8. COLACE [Concomitant]
     Route: 065

REACTIONS (3)
  - Incisional hernia [Recovering/Resolving]
  - Cyst [Unknown]
  - Intestinal resection [Recovered/Resolved]
